FAERS Safety Report 13247694 (Version 2)
Quarter: 2017Q1

REPORT INFORMATION
  Report Type: Spontaneous
  Country: IT (occurrence: IT)
  Receive Date: 20170217
  Receipt Date: 20170328
  Transmission Date: 20170428
  Serious: Yes (Hospitalization, Other)
  Sender: FDA-Public Use
  Company Number: IT-MYLANLABS-2017M1008989

PATIENT

DRUGS (4)
  1. TACROLIMUS. [Suspect]
     Active Substance: TACROLIMUS
     Indication: IMMUNOSUPPRESSANT DRUG THERAPY
     Dosage: 1 MG/DAY
     Route: 065
  2. VANCOMYCIN [Suspect]
     Active Substance: VANCOMYCIN
     Indication: ANTIBIOTIC THERAPY
     Dosage: 125MG
     Route: 065
  3. TOBRAMYCIN. [Suspect]
     Active Substance: TOBRAMYCIN
     Indication: ANTIBIOTIC THERAPY
     Dosage: 25MG
     Route: 065
  4. CINACALCET [Concomitant]
     Active Substance: CINACALCET
     Indication: HYPERPARATHYROIDISM
     Route: 065

REACTIONS (12)
  - Systemic candida [Recovered/Resolved]
  - Sepsis [Recovered/Resolved]
  - Pneumonia [Recovered/Resolved]
  - Pancreas infection [Recovered/Resolved]
  - Venous stenosis [Unknown]
  - Fungal peritonitis [Recovered/Resolved]
  - Acinetobacter infection [Recovered/Resolved]
  - Pulmonary embolism [Recovered/Resolved]
  - Renal vein thrombosis [Unknown]
  - Venous thrombosis [Unknown]
  - Pleural effusion [Recovered/Resolved]
  - Subclavian vein thrombosis [Unknown]
